FAERS Safety Report 16797984 (Version 1)
Quarter: 2019Q3

REPORT INFORMATION
  Report Type: Spontaneous
  Country: US (occurrence: US)
  Receive Date: 20190912
  Receipt Date: 20190912
  Transmission Date: 20191005
  Serious: No
  Sender: FDA-Public Use
  Company Number: US-GILEAD-2019-0427963

PATIENT
  Sex: Male

DRUGS (2)
  1. EPCLUSA [Suspect]
     Active Substance: SOFOSBUVIR\VELPATASVIR
     Indication: PRODUCT USED FOR UNKNOWN INDICATION
     Route: 065
  2. PEPCID AC [Concomitant]
     Active Substance: FAMOTIDINE

REACTIONS (3)
  - Drug screen positive [Unknown]
  - Insomnia [Not Recovered/Not Resolved]
  - Gastric disorder [Unknown]
